FAERS Safety Report 17645373 (Version 1)
Quarter: 2020Q2

REPORT INFORMATION
  Report Type: Spontaneous
  Country: ES (occurrence: ES)
  Receive Date: 20200408
  Receipt Date: 20200408
  Transmission Date: 20200713
  Serious: Yes (Other)
  Sender: FDA-Public Use
  Company Number: ES-MYLANLABS-2020M1035280

PATIENT
  Age: 86 Year
  Sex: Female

DRUGS (3)
  1. SALINE                             /00075401/ [Concomitant]
     Active Substance: SODIUM CHLORIDE
     Indication: VEHICLE SOLUTION USE
     Dosage: 177.5 ML OF 0.9% SODIUM CHLORIDE
     Route: 058
  2. FUROSEMIDE. [Suspect]
     Active Substance: FUROSEMIDE
     Indication: CARDIAC FAILURE CHRONIC
     Dosage: CONTINUOUS INFUSION GIVEN ...
     Route: 058
  3. FUROSEMIDE. [Suspect]
     Active Substance: FUROSEMIDE
     Indication: PALLIATIVE CARE

REACTIONS (4)
  - Off label use [Unknown]
  - Peau d^orange [Recovered/Resolved]
  - Fall [Unknown]
  - Humerus fracture [Unknown]
